FAERS Safety Report 10651497 (Version 3)
Quarter: 2015Q1

REPORT INFORMATION
  Report Type: Report from Study
  Country: DE (occurrence: DE)
  Receive Date: 20141215
  Receipt Date: 20150114
  Transmission Date: 20150720
  Serious: Yes (Hospitalization)
  Sender: FDA-Public Use
  Company Number: DE-009507513-1410DEU010143

PATIENT
  Age: 45 Year
  Sex: Male
  Weight: 99 kg

DRUGS (6)
  1. L-THYROXIN [Concomitant]
     Active Substance: LEVOTHYROXINE SODIUM
     Indication: HYPOTHYROIDISM
     Dosage: 50 MG, QD
     Route: 050
     Dates: start: 20140630
  2. PEMBROLIZUMAB. [Suspect]
     Active Substance: PEMBROLIZUMAB
     Indication: MALIGNANT MELANOMA
     Dosage: 10 MG/KG, Q2W
     Route: 042
     Dates: start: 20140211, end: 20140728
  3. METROGEL (METRONIDAZOLE) [Concomitant]
     Indication: ROSACEA
     Dosage: PRN, TOTAL DAILY DOSE: 1 (UNITS NOT PROVIDED)
     Route: 003
     Dates: start: 20131018
  4. ORAYCEA [Concomitant]
     Active Substance: DOXYCYCLINE
     Indication: ROSACEA
     Dosage: 40 MG, QD
     Route: 048
     Dates: start: 20131018
  5. PEMBROLIZUMAB. [Suspect]
     Active Substance: PEMBROLIZUMAB
     Dosage: 10 MG/KG, Q2W
     Route: 042
     Dates: start: 20140901
  6. PEMBROLIZUMAB. [Suspect]
     Active Substance: PEMBROLIZUMAB
     Dosage: 10 MG/KG, Q2W
     Route: 042
     Dates: start: 20140818, end: 20140818

REACTIONS (1)
  - Anal fistula [Recovering/Resolving]

NARRATIVE: CASE EVENT DATE: 20140830
